FAERS Safety Report 14761326 (Version 1)
Quarter: 2018Q2

REPORT INFORMATION
  Report Type: Report from Study
  Country: US (occurrence: US)
  Receive Date: 20180415
  Receipt Date: 20180415
  Transmission Date: 20180711
  Serious: Yes (Other)
  Sender: FDA-Public Use
  Company Number: PHEH2018US013309

PATIENT
  Sex: Male

DRUGS (1)
  1. ENTRESTO [Suspect]
     Active Substance: SACUBITRIL\VALSARTAN
     Indication: PRODUCT USED FOR UNKNOWN INDICATION
     Route: 048

REACTIONS (7)
  - Weight decreased [Unknown]
  - Ejection fraction abnormal [Unknown]
  - Mobility decreased [Unknown]
  - Dyspnoea [Unknown]
  - Pulmonary oedema [Unknown]
  - Swelling [Unknown]
  - Cardiac disorder [Unknown]
